FAERS Safety Report 6067986-3 (Version None)
Quarter: 2009Q1

REPORT INFORMATION
  Report Type: 
  Country: None (occurrence: None)
  Receive Date: 20090206
  Receipt Date: 20090204
  Transmission Date: 20090719
  Serious: Yes (Other)
  Sender: FDA-Public Use
  Company Number: US-JNJFOC-20081204165

PATIENT
  Sex: Female

DRUGS (1)
  1. TERAZOL 1 [Suspect]
     Indication: DRUG USE FOR UNKNOWN INDICATION
     Route: 067

REACTIONS (5)
  - ABORTION SPONTANEOUS [None]
  - DRUG EXPOSURE DURING PREGNANCY [None]
  - GENITAL HAEMORRHAGE [None]
  - SMALL FOR DATES BABY [None]
  - VAGINAL HAEMORRHAGE [None]
